FAERS Safety Report 24946947 (Version 2)
Quarter: 2025Q1

REPORT INFORMATION
  Report Type: Spontaneous
  Country: IL (occurrence: IL)
  Receive Date: 20250210
  Receipt Date: 20250211
  Transmission Date: 20250409
  Serious: Yes (Life-Threatening, Hospitalization)
  Sender: BOEHRINGER INGELHEIM
  Company Number: IL-BoehringerIngelheim-2025-BI-007340

PATIENT
  Age: 51 Year
  Sex: Female

DRUGS (2)
  1. JARDIANCE [Suspect]
     Active Substance: EMPAGLIFLOZIN
     Indication: Diabetes mellitus
  2. long-acting insulin 25 units [Concomitant]
     Indication: Product used for unknown indication

REACTIONS (2)
  - Diabetic ketoacidosis [Unknown]
  - Influenza [Unknown]

NARRATIVE: CASE EVENT DATE: 20250101
